FAERS Safety Report 5836346-X (Version None)
Quarter: 2008Q3

REPORT INFORMATION
  Report Type: 
  Country: None (occurrence: None)
  Receive Date: 20080805
  Receipt Date: 20080722
  Transmission Date: 20090109
  Serious: Yes (Death)
  Sender: FDA-Public Use
  Company Number: 2008AL006862

PATIENT
  Age: 68 Year
  Sex: Male

DRUGS (1)
  1. DIGOXIN [Suspect]
     Dosage: 1 TABLET, DAILY, PO
     Route: 048

REACTIONS (1)
  - CARDIAC ARREST [None]
